FAERS Safety Report 17086001 (Version 1)
Quarter: 2019Q4

REPORT INFORMATION
  Report Type: Spontaneous
  Country: US (occurrence: US)
  Receive Date: 20191127
  Receipt Date: 20191127
  Transmission Date: 20200122
  Serious: Yes (Hospitalization, Other)
  Sender: FDA-Public Use
  Company Number: None

PATIENT
  Age: 84 Year
  Sex: Female
  Weight: 71.1 kg

DRUGS (1)
  1. DULOXETINE. [Suspect]
     Active Substance: DULOXETINE
     Indication: DIABETIC NEUROPATHY
     Route: 048
     Dates: start: 20071011, end: 20191124

REACTIONS (4)
  - Confusional state [None]
  - Hyperglycaemia [None]
  - Disorientation [None]
  - Hypoglycaemia [None]

NARRATIVE: CASE EVENT DATE: 20191127
